FAERS Safety Report 9203370 (Version 2)
Quarter: 2014Q1

REPORT INFORMATION
  Report Type: Spontaneous
  Country: US (occurrence: US)
  Receive Date: 20130402
  Receipt Date: 20140129
  Transmission Date: 20141002
  Serious: Yes (Hospitalization, Other)
  Sender: FDA-Public Use
  Company Number: US-BAYER-2013-039194

PATIENT
  Age: 26 Year
  Sex: Female

DRUGS (5)
  1. YASMIN [Suspect]
     Dosage: UNK
     Dates: start: 200801, end: 201002
  2. GIANVI [Suspect]
     Dosage: UNK
     Dates: start: 200801, end: 201002
  3. OCELLA [Suspect]
     Dosage: UNK
     Dates: start: 200801, end: 201002
  4. YAZ [Suspect]
     Dosage: UNK
     Dates: start: 200801, end: 201002
  5. CIPRO [Concomitant]

REACTIONS (4)
  - Cholecystectomy [None]
  - Cholecystitis acute [None]
  - Pain [None]
  - Injury [None]
